FAERS Safety Report 16815847 (Version 2)
Quarter: 2025Q3

REPORT INFORMATION
  Report Type: Spontaneous
  Country: EU (occurrence: EU)
  Receive Date: 20190917
  Receipt Date: 20250711
  Transmission Date: 20251020
  Serious: Yes (Hospitalization)
  Sender: TEVA
  Company Number: None

PATIENT
  Sex: Female

DRUGS (4)
  1. OLANZAPINE [Suspect]
     Active Substance: OLANZAPINE
     Indication: Product used for unknown indication
     Route: 048
     Dates: start: 20190419, end: 20190419
  2. TRIMEPRAZINE [Suspect]
     Active Substance: TRIMEPRAZINE
     Indication: Product used for unknown indication
     Route: 048
     Dates: start: 20190419, end: 20190419
  3. PROMETHAZINE HYDROCHLORIDE\THIOUREA [Suspect]
     Active Substance: PROMETHAZINE HYDROCHLORIDE\THIOUREA
     Indication: Product used for unknown indication
     Route: 048
     Dates: start: 20190419, end: 20190419
  4. PROPIOMAZINE [Suspect]
     Active Substance: PROPIOMAZINE
     Indication: Product used for unknown indication
     Route: 048
     Dates: start: 20190419, end: 20190419

REACTIONS (2)
  - Suicide attempt [Unknown]
  - Intentional overdose [Unknown]

NARRATIVE: CASE EVENT DATE: 20190419
